FAERS Safety Report 12942817 (Version 1)
Quarter: 2016Q4

REPORT INFORMATION
  Report Type: Spontaneous
  Country: US (occurrence: US)
  Receive Date: 20161115
  Receipt Date: 20161115
  Transmission Date: 20170207
  Serious: No
  Sender: FDA-Public Use
  Company Number: US-BAUSCH-BL-2016-005551

PATIENT
  Sex: Female

DRUGS (13)
  1. CERAVE MOISTURIZING CREAM [Suspect]
     Active Substance: COSMETICS
     Indication: DRY SKIN PROPHYLAXIS
  2. CERAVE EYE REPAIR CREAM [Suspect]
     Active Substance: COSMETICS
     Indication: ERYTHEMA
     Dosage: DAILY
     Route: 061
     Dates: start: 2015
  3. CERAVE SKIN RENEWING CREAM SERUM [Suspect]
     Active Substance: COSMETICS
     Indication: ERYTHEMA
     Dosage: DAILY
     Route: 061
     Dates: start: 2015
  4. METRONIDAZOLE. [Suspect]
     Active Substance: METRONIDAZOLE
     Indication: ROSACEA
     Dosage: 1 APPLICATION
     Route: 061
     Dates: start: 2015
  5. CERAVE AM BROAD SPECTRUM SUNSCREEN SPF 30 [Suspect]
     Active Substance: HOMOSALATE\MERADIMATE\OCTINOXATE\OCTOCRYLENE\ZINC OXIDE
     Indication: ERYTHEMA
     Dosage: DAILY
     Route: 061
     Dates: start: 2015
  6. CERAVE MOISTURIZING CREAM [Suspect]
     Active Substance: COSMETICS
     Indication: ERYTHEMA
     Route: 061
     Dates: start: 2015
  7. CERAVE AM BROAD SPECTRUM SUNSCREEN SPF 30 [Suspect]
     Active Substance: HOMOSALATE\MERADIMATE\OCTINOXATE\OCTOCRYLENE\ZINC OXIDE
     Indication: DRY SKIN PROPHYLAXIS
  8. CERAVE FACIAL MOISTURIZING LOTION PM [Suspect]
     Active Substance: COSMETICS
     Indication: ERYTHEMA
     Dosage: DAILY
     Route: 061
     Dates: start: 2015
  9. CERAVE SKIN RENEWING CREAM SERUM [Suspect]
     Active Substance: COSMETICS
     Indication: DRY SKIN PROPHYLAXIS
  10. CERAVE RENEWING SA CREAM [Suspect]
     Active Substance: SALICYLIC ACID
     Indication: ERYTHEMA
     Route: 061
     Dates: start: 2015
  11. CERAVE EYE REPAIR CREAM [Suspect]
     Active Substance: COSMETICS
     Indication: DRY SKIN PROPHYLAXIS
  12. CERAVE RENEWING SA CREAM [Suspect]
     Active Substance: SALICYLIC ACID
     Indication: DRY SKIN PROPHYLAXIS
  13. CERAVE FACIAL MOISTURIZING LOTION PM [Suspect]
     Active Substance: COSMETICS
     Indication: DRY SKIN PROPHYLAXIS

REACTIONS (1)
  - Erythema [Not Recovered/Not Resolved]
